FAERS Safety Report 15170298 (Version 1)
Quarter: 2018Q3

REPORT INFORMATION
  Report Type: Spontaneous
  Country: FR (occurrence: FR)
  Receive Date: 20180720
  Receipt Date: 20180720
  Transmission Date: 20181010
  Serious: Yes (Hospitalization)
  Sender: FDA-Public Use
  Company Number: FR-TEVA-2018-FR-929346

PATIENT
  Age: 24 Year
  Sex: Male
  Weight: 100 kg

DRUGS (5)
  1. TAZOCILLINE [Suspect]
     Active Substance: PIPERACILLIN SODIUM\TAZOBACTAM SODIUM
     Indication: ANTIBIOTIC PROPHYLAXIS
     Dosage: 12 GRAM DAILY;
     Route: 042
     Dates: start: 20180607
  2. VANCOMYCIN [Suspect]
     Active Substance: VANCOMYCIN
     Indication: ANTIBIOTIC PROPHYLAXIS
     Dosage: 15 MG/KG DAILY;
     Route: 042
     Dates: start: 20180607, end: 20180607
  3. PARACETAMOL [Concomitant]
     Active Substance: ACETAMINOPHEN
  4. OPDIVO [Concomitant]
     Active Substance: NIVOLUMAB
  5. ZYMAD [Concomitant]
     Active Substance: CHOLECALCIFEROL

REACTIONS (6)
  - Hypersensitivity [Recovered/Resolved]
  - Erythema [Recovered/Resolved]
  - Lip oedema [Recovered/Resolved]
  - Eye oedema [Recovered/Resolved]
  - Eyelid oedema [Recovered/Resolved]
  - Red man syndrome [Recovered/Resolved]

NARRATIVE: CASE EVENT DATE: 20180607
